FAERS Safety Report 5032383-6 (Version None)
Quarter: 2006Q2

REPORT INFORMATION
  Report Type: 
  Country: None (occurrence: None)
  Receive Date: 20060508
  Receipt Date: 20050422
  Transmission Date: 20061013
  Serious: Yes (Hospitalization)
  Sender: FDA-Public Use
  Company Number: 231579K05USA

PATIENT
  Age: 48 Year
  Sex: Female

DRUGS (7)
  1. REBIF [Suspect]
     Indication: MULTIPLE SCLEROSIS
     Dosage: 44 MCG, 3 IN 1 WEEKS, SUBCUTANEOUS
     Route: 058
     Dates: start: 20030910
  2. EVISTA [Concomitant]
  3. PAXIL [Concomitant]
  4. NUTRALITE MULTIVITAMIN (MULTIVITAMINS) [Concomitant]
  5. BACLOFEN [Concomitant]
  6. MUSCLE RELAXANT (ALL OTHER THERAPEUTIC PRODUCTS) [Concomitant]
  7. ADVIL [Concomitant]

REACTIONS (7)
  - BACTERIA URINE [None]
  - DIFFICULTY IN WALKING [None]
  - MULTIPLE SCLEROSIS RELAPSE [None]
  - MUSCLE SPASMS [None]
  - NEUROGENIC BLADDER [None]
  - URINARY INCONTINENCE [None]
  - WHITE BLOOD CELL COUNT INCREASED [None]
